FAERS Safety Report 6636322-3 (Version None)
Quarter: 2010Q1

REPORT INFORMATION
  Report Type: 
  Country: None (occurrence: None)
  Receive Date: 20100226
  Receipt Date: 20090223
  Transmission Date: 20100710
  Serious: Yes (Hospitalization)
  Sender: FDA-Public Use
  Company Number: WAES 0902USA04305

PATIENT
  Age: 80 Year
  Sex: Female

DRUGS (11)
  1. PRINIVIL [Suspect]
     Dosage: 20 MG/DAILY/PO : 40 MG/DAILY/PO
     Route: 048
     Dates: end: 20040503
  2. PRINIVIL [Suspect]
     Dosage: 20 MG/DAILY/PO : 40 MG/DAILY/PO
     Route: 048
     Dates: start: 20040505
  3. ALDACTONE [Suspect]
     Dosage: 25 MG/DAILY
     Dates: end: 20040503
  4. IMDUR [Suspect]
     Dosage: 30 MG/DAILY
     Dates: end: 20040503
  5. AMBIEN [Concomitant]
  6. CELEXA [Concomitant]
  7. NEURONTIN [Concomitant]
  8. PRILOSEC [Concomitant]
  9. ASPIRIN [Concomitant]
  10. LOVASTATIN [Concomitant]
  11. PROMETHAZINE [Concomitant]

REACTIONS (2)
  - ANGINA PECTORIS [None]
  - SYNCOPE [None]
